FAERS Safety Report 6044897-0 (Version None)
Quarter: 2009Q1

REPORT INFORMATION
  Report Type: 
  Country: None (occurrence: None)
  Receive Date: 20090121
  Receipt Date: 20090114
  Transmission Date: 20090719
  Serious: Yes (Hospitalization)
  Sender: FDA-Public Use
  Company Number: US-PFIZER INC-2009155537

PATIENT
  Sex: Male

DRUGS (2)
  1. BEXTRA [Suspect]
     Dosage: 10 MG, 3X/DAY
     Dates: start: 19980101
  2. BEXTRA [Suspect]
     Dosage: 20 MG, 3X/DAY
     Dates: start: 19980101

REACTIONS (1)
  - CEREBROVASCULAR ACCIDENT [None]
